FAERS Safety Report 8926684 (Version 1)
Quarter: 2012Q4

REPORT INFORMATION
  Report Type: 
  Country: DE (occurrence: DE)
  Receive Date: 20121127
  Receipt Date: 20121127
  Transmission Date: 20130627
  Serious: Yes (Hospitalization)
  Sender: FDA-Public Use
  Company Number: DE-PFIZER INC-2012293520

PATIENT
  Age: 60 Year
  Sex: Female
  Weight: 64 kg

DRUGS (8)
  1. GENOTROPIN [Suspect]
     Dosage: 0.2 mg, 1x/day, 7 injections/week
     Route: 058
     Dates: start: 20011207
  2. FLUDROCORTISONE [Concomitant]
     Indication: ACTH DECREASED
     Dosage: UNK
     Dates: start: 19950901
  3. ESTRADERM [Concomitant]
     Indication: LUTEINIZING HORMONE DEFICIENCY
     Dosage: UNK
     Dates: start: 19991015
  4. ESTRADERM [Concomitant]
     Indication: FOLLICLE-STIMULATING HORMONE DEFICIENCY
  5. ESTRADERM [Concomitant]
     Indication: OVARIAN DISORDER
  6. ESTRADERM [Concomitant]
     Indication: HYPOGONADISM FEMALE
  7. MILGAMMA FOR INJECTION [Concomitant]
     Indication: UNSPECIFIED VITAMIN B DEFICIENCY
     Dosage: UNK
     Dates: start: 19991015
  8. HYDROCORTISONE [Concomitant]
     Indication: ACTH DECREASED
     Dosage: UNK
     Dates: start: 19810701

REACTIONS (1)
  - Abdominal hernia [Unknown]
